FAERS Safety Report 19742202 (Version 30)
Quarter: 2023Q2

REPORT INFORMATION
  Report Type: Other
  Country: GB (occurrence: GB)
  Receive Date: 20210825
  Receipt Date: 20230428
  Transmission Date: 20230721
  Serious: Yes (Death, Hospitalization, Other)
  Sender: FDA-Public Use
  Company Number: None

PATIENT

DRUGS (223)
  1. DEXAMETHASONE [Suspect]
     Active Substance: DEXAMETHASONE
     Indication: Dysphagia
     Dosage: UNK UNK, OD (1 IN 1 DAY)
     Route: 065
     Dates: start: 20200825
  2. DEXAMETHASONE [Suspect]
     Active Substance: DEXAMETHASONE
     Indication: Prophylaxis
     Dosage: 1 MILLIGRAM, OD
     Route: 065
     Dates: start: 20200826
  3. DEXAMETHASONE [Suspect]
     Active Substance: DEXAMETHASONE
     Dosage: UNK UNK, OD (1 IN 1 DAY)
     Route: 065
     Dates: start: 20200826
  4. DEXAMETHASONE [Suspect]
     Active Substance: DEXAMETHASONE
     Dosage: UNK, OD
     Route: 065
     Dates: start: 20200826
  5. DEXAMETHASONE [Suspect]
     Active Substance: DEXAMETHASONE
     Dosage: UNK
     Route: 065
  6. DEXAMETHASONE [Suspect]
     Active Substance: DEXAMETHASONE
     Dosage: UNK
     Route: 065
  7. DEXAMETHASONE [Suspect]
     Active Substance: DEXAMETHASONE
     Dosage: UNK
     Route: 065
  8. DEXAMETHASONE [Suspect]
     Active Substance: DEXAMETHASONE
     Dosage: UNK
     Route: 065
  9. DEXAMETHASONE [Suspect]
     Active Substance: DEXAMETHASONE
     Dosage: UNK
     Route: 065
  10. DEXAMETHASONE [Suspect]
     Active Substance: DEXAMETHASONE
     Dosage: UNK
     Route: 065
  11. DEXAMETHASONE [Suspect]
     Active Substance: DEXAMETHASONE
     Dosage: UNK
     Route: 065
  12. DEXAMETHASONE [Suspect]
     Active Substance: DEXAMETHASONE
     Dosage: UNK, BID
     Route: 065
  13. DEXAMETHASONE [Suspect]
     Active Substance: DEXAMETHASONE
     Dosage: UNK, BID
     Route: 065
  14. DEXAMETHASONE [Suspect]
     Active Substance: DEXAMETHASONE
     Dosage: UNK (0.5 DAY)
     Route: 065
  15. DEXAMETHASONE [Suspect]
     Active Substance: DEXAMETHASONE
     Dosage: UNK (0.5 DAY)
     Route: 065
  16. DEXAMETHASONE [Suspect]
     Active Substance: DEXAMETHASONE
     Dosage: UNK (0.5 DAY)
     Route: 065
  17. DEXAMETHASONE [Suspect]
     Active Substance: DEXAMETHASONE
     Dosage: UNK, BID
     Route: 065
  18. DEXAMETHASONE [Suspect]
     Active Substance: DEXAMETHASONE
     Dosage: UNK (12 HOUR)
     Route: 065
  19. DEXAMETHASONE [Suspect]
     Active Substance: DEXAMETHASONE
     Dosage: UNK (12 HOUR)
     Route: 065
  20. DEXAMETHASONE [Suspect]
     Active Substance: DEXAMETHASONE
     Dosage: UNK, Q12H (EVERY 12 HOURS)
     Route: 065
  21. DEXAMETHASONE [Suspect]
     Active Substance: DEXAMETHASONE
     Dosage: UNK, OD
     Route: 065
     Dates: start: 20200825
  22. DEXAMETHASONE [Suspect]
     Active Substance: DEXAMETHASONE
     Dosage: UNK UNK, BID (1 IN 12 HOUR)
     Route: 065
  23. LINEZOLID [Suspect]
     Active Substance: LINEZOLID
     Indication: Neutropenic sepsis
     Dosage: UNK
     Route: 065
     Dates: start: 20200830
  24. LINEZOLID [Suspect]
     Active Substance: LINEZOLID
     Dosage: 1 DOSAGE FORM, QD
     Route: 065
     Dates: start: 20200830
  25. VORICONAZOLE [Suspect]
     Active Substance: VORICONAZOLE
     Indication: Neutropenic sepsis
     Dosage: UNK, QD
     Route: 065
     Dates: start: 20200830
  26. VORICONAZOLE [Suspect]
     Active Substance: VORICONAZOLE
     Dosage: 1 DOSAGE FORM, OD
     Route: 065
     Dates: start: 20200830
  27. AMLODIPINE [Suspect]
     Active Substance: AMLODIPINE BESYLATE
     Indication: Hypertension
     Dosage: UNK, QD
     Route: 065
  28. AMLODIPINE [Suspect]
     Active Substance: AMLODIPINE BESYLATE
     Dosage: 1 MILLIGRAM, OD
     Route: 065
  29. AMLODIPINE [Suspect]
     Active Substance: AMLODIPINE BESYLATE
     Dosage: 1 DOSAGE FORM, QD
     Route: 065
  30. AMLODIPINE [Suspect]
     Active Substance: AMLODIPINE BESYLATE
     Dosage: 1 DOSAGE FORM, QD
     Route: 065
  31. AMLODIPINE [Suspect]
     Active Substance: AMLODIPINE BESYLATE
     Dosage: UNK UNK, OD
     Route: 065
  32. AMLODIPINE [Suspect]
     Active Substance: AMLODIPINE BESYLATE
     Dosage: UNK UNK, OD
     Route: 065
  33. AMLODIPINE [Suspect]
     Active Substance: AMLODIPINE BESYLATE
     Dosage: UNK UNK, OD
     Route: 065
  34. AMLODIPINE [Suspect]
     Active Substance: AMLODIPINE BESYLATE
     Dosage: UNK UNK, OD
     Route: 065
  35. AMLODIPINE [Suspect]
     Active Substance: AMLODIPINE BESYLATE
     Dosage: UNK UNK, OD
     Route: 065
  36. AMLODIPINE [Suspect]
     Active Substance: AMLODIPINE BESYLATE
     Dosage: UNK, QD
     Route: 065
  37. AMLODIPINE [Suspect]
     Active Substance: AMLODIPINE BESYLATE
     Dosage: UNK
     Route: 065
  38. AMLODIPINE [Suspect]
     Active Substance: AMLODIPINE BESYLATE
     Dosage: UNK
     Route: 065
  39. AMOXICILLIN [Suspect]
     Active Substance: AMOXICILLIN
     Indication: Product used for unknown indication
     Dosage: UNK, QID (Q6H)
     Route: 065
     Dates: start: 20200810, end: 20200816
  40. AMOXICILLIN [Suspect]
     Active Substance: AMOXICILLIN
     Dosage: UNK
     Route: 065
     Dates: start: 20200810, end: 20200816
  41. AMOXICILLIN [Suspect]
     Active Substance: AMOXICILLIN
     Dosage: 1 DOSAGE FORM, QD
     Route: 065
     Dates: start: 20200810, end: 20200816
  42. AMOXICILLIN [Suspect]
     Active Substance: AMOXICILLIN
     Dosage: UNK
     Route: 065
     Dates: start: 20200810, end: 20200816
  43. AMOXICILLIN [Suspect]
     Active Substance: AMOXICILLIN
     Dosage: UNK UNK, QD
     Route: 065
  44. AMOXICILLIN [Suspect]
     Active Substance: AMOXICILLIN
     Dosage: UNK UNK, QID
     Route: 065
     Dates: start: 20200810, end: 20200816
  45. AMOXICILLIN [Suspect]
     Active Substance: AMOXICILLIN
     Dosage: UNK, QW
     Route: 065
     Dates: start: 20200810, end: 20200816
  46. ATEZOLIZUMAB [Suspect]
     Active Substance: ATEZOLIZUMAB
     Indication: Small cell lung cancer
     Dosage: 1200 MILLIGRAM, EVERY 3 WEEKS, MOST RECENT DOSE OF ATEZOLIZUMAB PRIOR TO ADVERSE EVENT ONSET ON 19/A
     Route: 041
     Dates: start: 20200729
  47. ATEZOLIZUMAB [Suspect]
     Active Substance: ATEZOLIZUMAB
     Indication: Small cell lung cancer extensive stage
     Dosage: 1200 MILLIGRAM,TIW
     Route: 041
     Dates: start: 20200819
  48. ATEZOLIZUMAB [Suspect]
     Active Substance: ATEZOLIZUMAB
     Dosage: UNK
     Route: 065
  49. ATEZOLIZUMAB [Suspect]
     Active Substance: ATEZOLIZUMAB
     Dosage: 1200 MILLIGRAM, QW (1200 MG WEEKLY (MOST RECENT DOSE OF ATEZOLIZUMAB PRIOR TO ADVERSE EVENT (NAUSEA)
     Route: 041
     Dates: start: 20200729
  50. CARBOPLATIN [Suspect]
     Active Substance: CARBOPLATIN
     Indication: Small cell lung cancer extensive stage
     Dosage: 450 MILLIGRAM, OD
     Route: 065
     Dates: start: 20200729
  51. CARBOPLATIN [Suspect]
     Active Substance: CARBOPLATIN
     Indication: Non-small cell lung cancer
     Dosage: 450 MILLIGRAM
     Route: 065
     Dates: start: 20200729
  52. CARBOPLATIN [Suspect]
     Active Substance: CARBOPLATIN
     Dosage: UNK
     Route: 065
  53. CIPROFLOXACIN [Suspect]
     Active Substance: CIPROFLOXACIN
     Indication: Prophylaxis
     Dosage: UNK, (0.5 DAY)
     Route: 065
     Dates: start: 20200827
  54. CIPROFLOXACIN [Suspect]
     Active Substance: CIPROFLOXACIN
     Dosage: 2 DOSAGE FORM, OD Q12H
     Route: 065
     Dates: start: 20200827
  55. CIPROFLOXACIN [Suspect]
     Active Substance: CIPROFLOXACIN
     Dosage: 2 DOSAGE FORM, OD Q12H
     Route: 065
     Dates: start: 20200827
  56. CIPROFLOXACIN [Suspect]
     Active Substance: CIPROFLOXACIN
     Dosage: UNK
     Route: 065
  57. CIPROFLOXACIN [Suspect]
     Active Substance: CIPROFLOXACIN
     Dosage: UNK
     Route: 065
     Dates: start: 20200827
  58. CIPROFLOXACIN [Suspect]
     Active Substance: CIPROFLOXACIN
     Dosage: UNK
     Route: 065
     Dates: start: 20200827
  59. CIPROFLOXACIN [Suspect]
     Active Substance: CIPROFLOXACIN
     Dosage: 2 DOSAGE FORM, QD
     Route: 065
     Dates: start: 20200827
  60. CLOPIDOGREL [Suspect]
     Active Substance: CLOPIDOGREL BISULFATE
     Indication: Hypertension
     Dosage: UNK, OD
     Route: 065
  61. CLOPIDOGREL [Suspect]
     Active Substance: CLOPIDOGREL BISULFATE
     Dosage: UNK, OD
     Route: 065
  62. CLOPIDOGREL [Suspect]
     Active Substance: CLOPIDOGREL BISULFATE
     Dosage: 1 DOSAGE FORM, OD
     Route: 065
  63. CLOPIDOGREL [Suspect]
     Active Substance: CLOPIDOGREL BISULFATE
     Dosage: UNK, OD
     Route: 065
  64. CLOPIDOGREL [Suspect]
     Active Substance: CLOPIDOGREL BISULFATE
     Dosage: 1 DOSAGE FORM, QD
     Route: 065
  65. CYCLIZINE [Suspect]
     Active Substance: CYCLIZINE
     Indication: Vomiting
     Dosage: UNK UNK, QID
     Route: 065
  66. CYCLIZINE [Suspect]
     Active Substance: CYCLIZINE
     Indication: Neutropenic sepsis
     Dosage: 1 IN 0.25 DAY
     Route: 065
  67. CYCLIZINE [Suspect]
     Active Substance: CYCLIZINE
     Dosage: UNK (1 IN 6 HOURS)
     Route: 065
  68. CYCLIZINE [Suspect]
     Active Substance: CYCLIZINE
     Dosage: UNK, BID
     Route: 065
  69. CYCLIZINE [Suspect]
     Active Substance: CYCLIZINE
     Dosage: 4 MILLIGRAM, OD
     Route: 065
  70. CYCLIZINE [Suspect]
     Active Substance: CYCLIZINE
     Dosage: UNK
     Route: 065
  71. CYCLIZINE [Suspect]
     Active Substance: CYCLIZINE
     Dosage: UNK (TIME INTERVAL)
     Route: 065
  72. CYCLIZINE [Suspect]
     Active Substance: CYCLIZINE
     Dosage: 1 DOSAGE FORM, OD
     Route: 065
  73. CYCLIZINE [Suspect]
     Active Substance: CYCLIZINE
     Dosage: 0.25 UNK, QD
     Route: 065
  74. CYCLIZINE [Suspect]
     Active Substance: CYCLIZINE
     Dosage: 1 IN 1.3 DAY
     Route: 065
  75. CYCLIZINE [Suspect]
     Active Substance: CYCLIZINE
     Dosage: 1 IN 1.3 DAY
     Route: 065
  76. CYCLIZINE [Suspect]
     Active Substance: CYCLIZINE
     Dosage: 1 IN 1.3 DAY
     Route: 065
  77. CYCLIZINE [Suspect]
     Active Substance: CYCLIZINE
     Dosage: 4 MILLIGRAM, QD
     Route: 065
  78. CYCLIZINE [Suspect]
     Active Substance: CYCLIZINE
     Dosage: UNK, QID (0.25 DAY)
     Route: 065
  79. CYCLIZINE [Suspect]
     Active Substance: CYCLIZINE
     Dosage: 1 DOSAGE FORM, 0.3 DAY
     Route: 065
  80. CYCLIZINE [Suspect]
     Active Substance: CYCLIZINE
     Dosage: UNK, QD (4 IN 1 DAY)
     Route: 065
  81. CYCLIZINE [Suspect]
     Active Substance: CYCLIZINE
     Dosage: UNK
     Route: 065
  82. CYCLIZINE [Suspect]
     Active Substance: CYCLIZINE
     Dosage: 1 IN 0.3 DAY
     Route: 065
  83. BENZYDAMINE [Suspect]
     Active Substance: BENZYDAMINE
     Indication: Prophylaxis
     Dosage: UNK
     Route: 065
     Dates: start: 20200819
  84. ETOPOSIDE [Suspect]
     Active Substance: ETOPOSIDE
     Indication: Non-small cell lung cancer
     Dosage: 148 MILLIGRAM, QD
     Route: 065
     Dates: start: 20200729
  85. ETOPOSIDE [Suspect]
     Active Substance: ETOPOSIDE
     Indication: Small cell lung cancer extensive stage
     Dosage: 600 MILLIGRAM, OD
     Route: 048
     Dates: start: 20200730
  86. ETOPOSIDE [Suspect]
     Active Substance: ETOPOSIDE
     Dosage: 148 MILLIGRAM
     Route: 065
     Dates: start: 20200729
  87. ETOPOSIDE [Suspect]
     Active Substance: ETOPOSIDE
     Dosage: 600 MILLIGRAM
     Route: 048
     Dates: start: 20200730
  88. ETOPOSIDE [Suspect]
     Active Substance: ETOPOSIDE
     Dosage: 148 MILLIGRAM
     Route: 042
     Dates: start: 20200729
  89. ETOPOSIDE [Suspect]
     Active Substance: ETOPOSIDE
     Dosage: UNK
     Route: 016
  90. FLUCONAZOLE [Suspect]
     Active Substance: FLUCONAZOLE
     Indication: Candida infection
     Dosage: UNK, OD
     Route: 065
  91. FLUCONAZOLE [Suspect]
     Active Substance: FLUCONAZOLE
     Dosage: UNK, OD
     Route: 065
  92. FLUCONAZOLE [Suspect]
     Active Substance: FLUCONAZOLE
     Dosage: UNK
     Route: 065
  93. FLUCONAZOLE [Suspect]
     Active Substance: FLUCONAZOLE
     Dosage: UNK
     Route: 065
  94. FLUCONAZOLE [Suspect]
     Active Substance: FLUCONAZOLE
     Dosage: UNK, OD
     Route: 065
  95. FLUCONAZOLE [Suspect]
     Active Substance: FLUCONAZOLE
     Dosage: 1 DOSAGE FORM, OD
     Route: 065
  96. FORMOTEROL [Suspect]
     Active Substance: FORMOTEROL
     Indication: Hypertension
     Dosage: UNK, QD
     Route: 065
     Dates: start: 20200301
  97. FORMOTEROL [Suspect]
     Active Substance: FORMOTEROL
     Dosage: 0.5 MILLIGRAM, OD
     Route: 065
     Dates: start: 20200301
  98. FORMOTEROL [Suspect]
     Active Substance: FORMOTEROL
     Dosage: 0.5 MILLIGRAM, 0.5 DAY
     Route: 065
     Dates: start: 20200301
  99. FORMOTEROL [Suspect]
     Active Substance: FORMOTEROL
     Dosage: 1 MILLIGRAM, BID
     Route: 065
     Dates: start: 20200301
  100. FORMOTEROL [Suspect]
     Active Substance: FORMOTEROL
     Dosage: 2 DOSAGE FORM, OD Q12H
     Route: 065
     Dates: start: 20200301
  101. FORMOTEROL [Suspect]
     Active Substance: FORMOTEROL
     Dosage: 0.5 MILLIGRAM
     Route: 065
     Dates: start: 20200301
  102. FORMOTEROL [Suspect]
     Active Substance: FORMOTEROL
     Dosage: 1 DOSAGE FORM, 0.5 DAY
     Route: 065
     Dates: start: 20200301
  103. LACTULOSE [Suspect]
     Active Substance: LACTULOSE
     Indication: Prophylaxis
     Dosage: UNK, BID (0.5 DAY)
     Route: 065
  104. LACTULOSE [Suspect]
     Active Substance: LACTULOSE
     Dosage: 2 DOSAGE FORM, OD Q12H
     Route: 065
  105. LACTULOSE [Suspect]
     Active Substance: LACTULOSE
     Dosage: UNK UNK, QD
     Route: 065
  106. LACTULOSE [Suspect]
     Active Substance: LACTULOSE
     Dosage: UNK UNK, QD
     Route: 065
  107. LACTULOSE [Suspect]
     Active Substance: LACTULOSE
     Dosage: UNK (0.5 DAY)
     Route: 065
  108. LACTULOSE [Suspect]
     Active Substance: LACTULOSE
     Dosage: 1 DOSAGE FORM, OD
     Route: 065
  109. LACTULOSE [Suspect]
     Active Substance: LACTULOSE
     Dosage: UNK, BID (0.5 DAY)
     Route: 065
  110. LACTULOSE [Suspect]
     Active Substance: LACTULOSE
     Dosage: UNK, BID (0.5 DAY)
     Route: 065
  111. LACTULOSE [Suspect]
     Active Substance: LACTULOSE
     Dosage: UNK (0.5 DAY)
     Route: 065
  112. LACTULOSE [Suspect]
     Active Substance: LACTULOSE
     Dosage: UNK, BID (Q12H)
     Route: 065
  113. LACTULOSE [Suspect]
     Active Substance: LACTULOSE
     Dosage: UNK (0.5 DAY)
     Route: 065
  114. LACTULOSE [Suspect]
     Active Substance: LACTULOSE
     Dosage: UNK UNK (12 HOUR)
     Route: 065
  115. LACTULOSE [Suspect]
     Active Substance: LACTULOSE
     Dosage: UNK
     Route: 065
  116. LACTULOSE [Suspect]
     Active Substance: LACTULOSE
     Dosage: UNK
     Route: 065
  117. LACTULOSE [Suspect]
     Active Substance: LACTULOSE
     Dosage: UNK, QD (0.5 DAY)
     Route: 065
  118. LACTULOSE [Suspect]
     Active Substance: LACTULOSE
     Dosage: UNK, Q12H
     Route: 065
  119. LACTULOSE [Suspect]
     Active Substance: LACTULOSE
     Dosage: 2 DOSAGE FORM, OD
     Route: 065
  120. LACTULOSE [Suspect]
     Active Substance: LACTULOSE
     Dosage: UNK UNK (12 HOUR)
     Route: 065
  121. LACTULOSE [Suspect]
     Active Substance: LACTULOSE
     Dosage: UNK (1 IN 1 DAY)
     Route: 065
  122. LANSOPRAZOLE [Suspect]
     Active Substance: LANSOPRAZOLE
     Indication: Prophylaxis
     Dosage: 1 MILLIGRAM, OD
     Route: 065
     Dates: start: 20170101
  123. LANSOPRAZOLE [Suspect]
     Active Substance: LANSOPRAZOLE
     Dosage: UNK, QD
     Route: 065
     Dates: start: 20170101
  124. LANSOPRAZOLE [Suspect]
     Active Substance: LANSOPRAZOLE
     Dosage: 1 DOSAGE FORM, OD
     Route: 065
     Dates: start: 20170101
  125. MORPHINE SULFATE [Suspect]
     Active Substance: MORPHINE SULFATE
     Indication: Pain
     Dosage: 2 DOSAGE FORM, QD
     Route: 065
     Dates: start: 20200731
  126. MORPHINE SULFATE [Suspect]
     Active Substance: MORPHINE SULFATE
     Indication: Prophylaxis
     Dosage: 1 DOSAGE FORM, QD
     Route: 065
     Dates: start: 20200731
  127. MORPHINE SULFATE [Suspect]
     Active Substance: MORPHINE SULFATE
     Dosage: UNK UNK, BID
     Route: 065
     Dates: start: 20200731
  128. MORPHINE SULFATE [Suspect]
     Active Substance: MORPHINE SULFATE
     Dosage: UNK (0.5 DAY)
     Route: 065
     Dates: start: 20200731
  129. MORPHINE SULFATE [Suspect]
     Active Substance: MORPHINE SULFATE
     Dosage: UNK
     Route: 065
     Dates: start: 20200825
  130. MORPHINE SULFATE [Suspect]
     Active Substance: MORPHINE SULFATE
     Dosage: UNK UNK, QD
     Route: 065
     Dates: start: 20200727
  131. MORPHINE SULFATE [Suspect]
     Active Substance: MORPHINE SULFATE
     Dosage: UNK
     Route: 065
     Dates: start: 20200727
  132. MORPHINE SULFATE [Suspect]
     Active Substance: MORPHINE SULFATE
     Dosage: UNK
     Route: 065
     Dates: start: 20200828
  133. MORPHINE SULFATE [Suspect]
     Active Substance: MORPHINE SULFATE
     Dosage: UNK (0.5 DAY)
     Route: 065
     Dates: start: 20200727
  134. ORAMORPH SR SUSTAINED RELEASE [Suspect]
     Active Substance: MORPHINE SULFATE
     Indication: Pain
     Dosage: 1 MILLIGRAM, OD
     Route: 065
     Dates: start: 20200727
  135. ORAMORPH SR SUSTAINED RELEASE [Suspect]
     Active Substance: MORPHINE SULFATE
     Indication: Prophylaxis
     Dosage: UNK UNK, QD
     Route: 065
     Dates: start: 20200727
  136. ORAMORPH SR SUSTAINED RELEASE [Suspect]
     Active Substance: MORPHINE SULFATE
     Dosage: UNK UNK, QD
     Route: 065
     Dates: start: 20200731
  137. ORAMORPH SR SUSTAINED RELEASE [Suspect]
     Active Substance: MORPHINE SULFATE
     Dosage: UNK
     Route: 065
     Dates: start: 20210825
  138. ORAMORPH SR SUSTAINED RELEASE [Suspect]
     Active Substance: MORPHINE SULFATE
     Dosage: 1 DOSAGE FORM, OD
     Route: 065
     Dates: start: 20200727
  139. ORAMORPH SR SUSTAINED RELEASE [Suspect]
     Active Substance: MORPHINE SULFATE
     Dosage: UNK UNK, QD
     Route: 065
     Dates: start: 20200825
  140. ALBUTEROL [Suspect]
     Active Substance: ALBUTEROL
     Indication: Prophylaxis
     Dosage: UNK
     Route: 065
  141. ALBUTEROL [Suspect]
     Active Substance: ALBUTEROL
     Dosage: UNK
     Route: 065
  142. ALBUTEROL [Suspect]
     Active Substance: ALBUTEROL
     Dosage: UNK
     Route: 065
  143. ALBUTEROL [Suspect]
     Active Substance: ALBUTEROL
     Dosage: UNK
     Route: 065
  144. ALBUTEROL [Suspect]
     Active Substance: ALBUTEROL
     Dosage: UNK UNK, OD (ONCE A DAY)
     Route: 065
  145. ACETAMINOPHEN\CODEINE PHOSPHATE [Suspect]
     Active Substance: ACETAMINOPHEN\CODEINE PHOSPHATE
     Indication: Pain
     Dosage: UNK, BID
     Route: 065
  146. ACETAMINOPHEN\CODEINE PHOSPHATE [Suspect]
     Active Substance: ACETAMINOPHEN\CODEINE PHOSPHATE
     Indication: Headache
     Dosage: 0.5 MILLIGRAM, QD
     Route: 065
  147. ACETAMINOPHEN\CODEINE PHOSPHATE [Suspect]
     Active Substance: ACETAMINOPHEN\CODEINE PHOSPHATE
     Dosage: 2 DOSAGE FORM, OD Q12H
     Route: 065
  148. ACETAMINOPHEN\CODEINE PHOSPHATE [Suspect]
     Active Substance: ACETAMINOPHEN\CODEINE PHOSPHATE
     Dosage: UNK UNK, OD
     Route: 065
  149. ACETAMINOPHEN\CODEINE PHOSPHATE [Suspect]
     Active Substance: ACETAMINOPHEN\CODEINE PHOSPHATE
     Dosage: 1 IN 0.5 DAY
     Route: 065
  150. ACETAMINOPHEN\CODEINE PHOSPHATE [Suspect]
     Active Substance: ACETAMINOPHEN\CODEINE PHOSPHATE
     Dosage: UNK
     Route: 065
  151. ACETAMINOPHEN\CODEINE PHOSPHATE [Suspect]
     Active Substance: ACETAMINOPHEN\CODEINE PHOSPHATE
     Dosage: UNK, QD
     Route: 065
  152. ACETAMINOPHEN\CODEINE PHOSPHATE [Suspect]
     Active Substance: ACETAMINOPHEN\CODEINE PHOSPHATE
     Dosage: 1 IN 0.5 DAY
     Route: 065
  153. ACETAMINOPHEN\CODEINE PHOSPHATE [Suspect]
     Active Substance: ACETAMINOPHEN\CODEINE PHOSPHATE
     Dosage: 1 IN 0.5 DAY
     Route: 065
  154. ACETAMINOPHEN\CODEINE PHOSPHATE [Suspect]
     Active Substance: ACETAMINOPHEN\CODEINE PHOSPHATE
     Dosage: UNK
     Route: 065
  155. ACETAMINOPHEN\CODEINE PHOSPHATE [Suspect]
     Active Substance: ACETAMINOPHEN\CODEINE PHOSPHATE
     Dosage: UNK
     Route: 065
  156. TIOTROPIUM [Suspect]
     Active Substance: TIOTROPIUM
     Indication: Chronic obstructive pulmonary disease
     Dosage: UNK, OD
     Route: 065
  157. TIOTROPIUM [Suspect]
     Active Substance: TIOTROPIUM
     Dosage: UNK
     Route: 065
  158. TIOTROPIUM [Suspect]
     Active Substance: TIOTROPIUM
     Dosage: UNK, OD
     Route: 065
  159. VENLAFAXINE [Suspect]
     Active Substance: VENLAFAXINE HYDROCHLORIDE
     Indication: Depression
     Dosage: UNK, QD
     Route: 065
  160. VENLAFAXINE [Suspect]
     Active Substance: VENLAFAXINE HYDROCHLORIDE
     Dosage: UNK UNK, BID
     Route: 065
     Dates: start: 20200820
  161. VENLAFAXINE [Suspect]
     Active Substance: VENLAFAXINE HYDROCHLORIDE
     Dosage: UNK (1 IN 0.5 DAY)
     Route: 065
     Dates: start: 20200820
  162. VENLAFAXINE [Suspect]
     Active Substance: VENLAFAXINE HYDROCHLORIDE
     Dosage: UNK, QD
     Route: 065
  163. VENLAFAXINE [Suspect]
     Active Substance: VENLAFAXINE HYDROCHLORIDE
     Dosage: 1 MILLIGRAM, BID
     Route: 065
  164. VENLAFAXINE [Suspect]
     Active Substance: VENLAFAXINE HYDROCHLORIDE
     Dosage: UNK, QD
     Route: 065
  165. VENLAFAXINE [Suspect]
     Active Substance: VENLAFAXINE HYDROCHLORIDE
     Dosage: 1 DOSAGE FORM
     Route: 065
     Dates: start: 20200820
  166. VENLAFAXINE [Suspect]
     Active Substance: VENLAFAXINE HYDROCHLORIDE
     Dosage: UNK
     Route: 065
  167. VENLAFAXINE [Suspect]
     Active Substance: VENLAFAXINE HYDROCHLORIDE
     Dosage: 1 DOSAGE FORM, QD
     Route: 065
     Dates: start: 20200820
  168. ZOPICLONE [Suspect]
     Active Substance: ZOPICLONE
     Indication: Prophylaxis
     Dosage: 1 MILLIGRAM, OD
     Route: 065
     Dates: start: 20200731
  169. ZOPICLONE [Suspect]
     Active Substance: ZOPICLONE
     Dosage: UNK UNK, QD
     Route: 065
     Dates: start: 20200731
  170. SPIRIVA [Suspect]
     Active Substance: TIOTROPIUM BROMIDE MONOHYDRATE
     Indication: Chronic obstructive pulmonary disease
     Dosage: UNK, QD
     Route: 065
  171. SPIRIVA [Suspect]
     Active Substance: TIOTROPIUM BROMIDE MONOHYDRATE
     Dosage: UNK, QD
     Route: 065
  172. SPIRIVA [Suspect]
     Active Substance: TIOTROPIUM BROMIDE MONOHYDRATE
     Dosage: UNK, QD
     Route: 065
  173. SPIRIVA [Suspect]
     Active Substance: TIOTROPIUM BROMIDE MONOHYDRATE
     Dosage: 1 DOSAGE FORM, QD
     Route: 065
  174. SPIRIVA [Suspect]
     Active Substance: TIOTROPIUM BROMIDE MONOHYDRATE
     Dosage: 1 DOSAGE FORM, OD
     Route: 065
  175. SPIRIVA [Suspect]
     Active Substance: TIOTROPIUM BROMIDE MONOHYDRATE
     Dosage: UNK
     Route: 065
  176. SPIRIVA [Suspect]
     Active Substance: TIOTROPIUM BROMIDE MONOHYDRATE
     Dosage: UNK, 12 HOUR
     Route: 065
  177. ATEZOLIZUMAB [Suspect]
     Active Substance: ATEZOLIZUMAB
     Indication: Transitional cell carcinoma
     Dosage: 1200 MILLIGRAM, EVERY 3 WEEKS
     Route: 041
     Dates: start: 20200819
  178. ATEZOLIZUMAB [Suspect]
     Active Substance: ATEZOLIZUMAB
     Indication: Small cell lung cancer
     Dosage: UNK
     Route: 065
  179. ATEZOLIZUMAB [Suspect]
     Active Substance: ATEZOLIZUMAB
     Dosage: 1200 MILLIGRAM, EVERY 3 WEEK
     Route: 041
     Dates: start: 20200729
  180. ATEZOLIZUMAB [Suspect]
     Active Substance: ATEZOLIZUMAB
     Dosage: UNK
     Route: 065
  181. CODEINE PHOSPHATE [Suspect]
     Active Substance: CODEINE PHOSPHATE
     Indication: Pain
     Dosage: 0.5 UNK, QD
     Route: 065
  182. ZOLMITRIPTAN [Suspect]
     Active Substance: ZOLMITRIPTAN
     Indication: Pain
     Dosage: UNK, OD
     Route: 065
  183. ATEZOLIZUMAB [Suspect]
     Active Substance: ATEZOLIZUMAB
     Indication: Small cell lung cancer
     Dosage: 1200 MILLIGRAM, EVERY 3 WEEKS
     Route: 041
     Dates: start: 20200729
  184. CLOPIDOGREL BISULFATE [Suspect]
     Active Substance: CLOPIDOGREL BISULFATE
     Indication: Hypertension
     Dosage: UNK
     Route: 065
  185. ATEZOLIZUMAB [Suspect]
     Active Substance: ATEZOLIZUMAB
     Indication: Non-small cell lung cancer
     Dosage: UNK
     Route: 065
  186. ATEZOLIZUMAB [Suspect]
     Active Substance: ATEZOLIZUMAB
     Indication: Small cell lung cancer extensive stage
     Dosage: 1200 MILLIGRAM, QW
     Route: 041
     Dates: start: 20200729
  187. ATEZOLIZUMAB [Suspect]
     Active Substance: ATEZOLIZUMAB
     Indication: Transitional cell carcinoma
     Dosage: UNK
     Route: 065
  188. ATEZOLIZUMAB [Suspect]
     Active Substance: ATEZOLIZUMAB
     Indication: Small cell lung cancer
     Dosage: UNK
     Route: 065
  189. ATEZOLIZUMAB [Suspect]
     Active Substance: ATEZOLIZUMAB
     Dosage: 1200 MILLIGRAM, EVERY 3 WEEK
     Route: 041
     Dates: start: 20200819
  190. ATEZOLIZUMAB [Suspect]
     Active Substance: ATEZOLIZUMAB
     Dosage: 450 MILLIGRAM, QD
     Route: 065
     Dates: start: 20200729
  191. ATEZOLIZUMAB [Suspect]
     Active Substance: ATEZOLIZUMAB
     Dosage: 1200 MILLIGRAM, EVERY 3 WEEK
     Route: 050
     Dates: start: 20200819
  192. ATEZOLIZUMAB [Suspect]
     Active Substance: ATEZOLIZUMAB
     Indication: Product used for unknown indication
     Dosage: 1200 MILLIGRAM, TIW (3 WEEK)
     Route: 042
     Dates: start: 20200819
  193. ATEZOLIZUMAB [Suspect]
     Active Substance: ATEZOLIZUMAB
     Indication: Small cell lung cancer extensive stage
     Dosage: UNK
     Route: 065
  194. ATEZOLIZUMAB [Suspect]
     Active Substance: ATEZOLIZUMAB
     Indication: Non-small cell lung cancer
     Dosage: 1200 MILLIGRAM (3 WEEK)
     Route: 042
     Dates: start: 20200729
  195. ATEZOLIZUMAB [Suspect]
     Active Substance: ATEZOLIZUMAB
     Indication: Small cell lung cancer
     Dosage: 1200 MILLIGRAM, EVERY 3 WEEKS; MOST RECENT DOSE OF  ATEZOLIZUMAB PRIOR TO ADVERSE EVENT (NAUSEA) ONS
     Route: 050
     Dates: start: 20200729
  196. ATEZOLIZUMAB [Suspect]
     Active Substance: ATEZOLIZUMAB
     Dosage: 1200 MILLIGRAM, EVERY 3 WEEKS; MOST RECENT DOSE OF  ATEZOLIZUMAB PRIOR TO ADVERSE EVENT (NAUSEA) ONS
     Route: 050
     Dates: start: 20200729
  197. MAGNESIUM [Concomitant]
     Active Substance: MAGNESIUM
     Indication: Product used for unknown indication
     Dosage: UNK, OD
     Route: 065
     Dates: start: 20200819, end: 20200819
  198. MAGNESIUM [Concomitant]
     Active Substance: MAGNESIUM
     Dosage: UNK
     Route: 065
     Dates: start: 20200819, end: 20200819
  199. METOCLOPRAMIDE [Concomitant]
     Active Substance: METOCLOPRAMIDE
     Indication: Vomiting
     Dosage: UNK, OD
     Route: 065
  200. METOCLOPRAMIDE [Concomitant]
     Active Substance: METOCLOPRAMIDE
     Indication: Hypomagnesaemia
     Dosage: 1 DOSAGE FORM
     Route: 065
     Dates: start: 20200819, end: 20200819
  201. METOCLOPRAMIDE [Concomitant]
     Active Substance: METOCLOPRAMIDE
     Dosage: 1 DOSAGE FORM, QID
     Route: 065
     Dates: start: 20200819, end: 20200819
  202. METOCLOPRAMIDE [Concomitant]
     Active Substance: METOCLOPRAMIDE
     Dosage: 1 DOSAGE FORM, QD
     Route: 065
     Dates: start: 20200819, end: 20200819
  203. SODIUM PHOSPHATE [Concomitant]
     Active Substance: SODIUM PHOSPHATE
     Indication: Product used for unknown indication
     Dosage: UNK, OD
     Route: 065
     Dates: start: 20200825, end: 20200825
  204. SODIUM PHOSPHATE [Concomitant]
     Active Substance: SODIUM PHOSPHATE
     Dosage: 1 DOSAGE FORM
     Route: 065
     Dates: start: 20200825, end: 20200825
  205. SODIUM PHOSPHATE [Concomitant]
     Active Substance: SODIUM PHOSPHATE
     Dosage: UNK
     Route: 065
  206. SODIUM PHOSPHATE [Concomitant]
     Active Substance: SODIUM PHOSPHATE
     Dosage: UNK UNK, QID
     Route: 065
     Dates: start: 20200825, end: 20200825
  207. SODIUM PHOSPHATE [Concomitant]
     Active Substance: SODIUM PHOSPHATE
     Dosage: 1 DOSAGE FORM, QD
     Route: 065
     Dates: start: 20200825, end: 20200825
  208. SODIUM PHOSPHATE [Concomitant]
     Active Substance: SODIUM PHOSPHATE
     Dosage: UNK
     Route: 065
     Dates: start: 20200819, end: 20200819
  209. POTASSIUM BICARBONATE\POTASSIUM CHLORIDE [Concomitant]
     Active Substance: POTASSIUM BICARBONATE\POTASSIUM CHLORIDE
     Indication: Prophylaxis
     Dosage: UNK (0.5 DAY)
     Route: 065
     Dates: start: 20200819
  210. POTASSIUM BICARBONATE\POTASSIUM CHLORIDE [Concomitant]
     Active Substance: POTASSIUM BICARBONATE\POTASSIUM CHLORIDE
     Dosage: UNK
     Route: 065
     Dates: start: 20200828, end: 20200901
  211. POTASSIUM BICARBONATE\POTASSIUM CHLORIDE [Concomitant]
     Active Substance: POTASSIUM BICARBONATE\POTASSIUM CHLORIDE
     Dosage: UNK
     Route: 065
     Dates: start: 20200828
  212. POTASSIUM BICARBONATE\POTASSIUM CHLORIDE [Concomitant]
     Active Substance: POTASSIUM BICARBONATE\POTASSIUM CHLORIDE
     Dosage: UNK, BID (0.5 DAY)
     Route: 065
     Dates: start: 20200819
  213. PHOSPHORIC ACID [Concomitant]
     Active Substance: PHOSPHORIC ACID
     Indication: Product used for unknown indication
     Dosage: UNK UNK, QD
     Route: 065
     Dates: start: 20200825, end: 20200825
  214. PHOSPHORIC ACID [Concomitant]
     Active Substance: PHOSPHORIC ACID
     Dosage: UNK UNK, QD
     Route: 065
     Dates: start: 20200825, end: 20200825
  215. PHOSPHORIC ACID [Concomitant]
     Active Substance: PHOSPHORIC ACID
     Dosage: UNK UNK, QD
     Route: 065
  216. PHOSPHORIC ACID [Concomitant]
     Active Substance: PHOSPHORIC ACID
     Dosage: UNK
     Route: 065
  217. PHOSPHORIC ACID [Concomitant]
     Active Substance: PHOSPHORIC ACID
     Dosage: UNK, QID (FOUR TIMES/DAY)
     Route: 065
     Dates: start: 20200825, end: 20200825
  218. POTASSIUM CHLORIDE [Concomitant]
     Active Substance: POTASSIUM CHLORIDE
     Indication: Prophylaxis
     Dosage: UNK, QD (0.5)
     Route: 065
     Dates: start: 20200819
  219. POTASSIUM CHLORIDE [Concomitant]
     Active Substance: POTASSIUM CHLORIDE
     Dosage: UNK
     Route: 065
     Dates: start: 20200828
  220. POTASSIUM CHLORIDE [Concomitant]
     Active Substance: POTASSIUM CHLORIDE
     Dosage: UNK, BID (TWO TIMES A DAY)
     Route: 065
     Dates: start: 20200819
  221. ONDANSETRON [Concomitant]
     Active Substance: ONDANSETRON
     Indication: Product used for unknown indication
     Dosage: UNK
     Route: 065
     Dates: start: 20200729, end: 20200729
  222. ONDANSETRON [Concomitant]
     Active Substance: ONDANSETRON
     Dosage: 8 MILLIGRAM
     Route: 065
     Dates: start: 20200729, end: 20200729
  223. ATEZOLIZUMAB [Concomitant]
     Active Substance: ATEZOLIZUMAB
     Indication: Product used for unknown indication
     Dosage: UNK
     Route: 042

REACTIONS (26)
  - Death [Fatal]
  - Balance disorder [Fatal]
  - Hypomagnesaemia [Fatal]
  - Product use in unapproved indication [Fatal]
  - Skin candida [Fatal]
  - Dysphagia [Fatal]
  - Neutropenic sepsis [Fatal]
  - Mucosal inflammation [Fatal]
  - Productive cough [Fatal]
  - Dehydration [Fatal]
  - Mouth ulceration [Fatal]
  - Dyspnoea [Fatal]
  - Constipation [Fatal]
  - Nervous system disorder [Fatal]
  - Gait disturbance [Fatal]
  - Neutrophil count decreased [Fatal]
  - Decreased appetite [Fatal]
  - Asthenia [Fatal]
  - Anaemia [Fatal]
  - Nausea [Fatal]
  - Hypokalaemia [Fatal]
  - Vomiting [Fatal]
  - Depression [Fatal]
  - Diarrhoea [Fatal]
  - Headache [Fatal]
  - Candida infection [Not Recovered/Not Resolved]

NARRATIVE: CASE EVENT DATE: 20200730
